FAERS Safety Report 12743894 (Version 6)
Quarter: 2019Q1

REPORT INFORMATION
  Report Type: Spontaneous
  Country: US (occurrence: US)
  Receive Date: 20160914
  Receipt Date: 20190327
  Transmission Date: 20190417
  Serious: Yes (Hospitalization, Other)
  Sender: FDA-Public Use
  Company Number: US-DSJP-DSU-2016-130021

PATIENT

DRUGS (4)
  1. AZOR [Suspect]
     Active Substance: AMLODIPINE BESYLATE\OLMESARTAN MEDOXOMIL
     Indication: HYPERTENSION
     Dosage: UNK
     Dates: start: 20080201, end: 2015
  2. BENICAR HCT [Suspect]
     Active Substance: HYDROCHLOROTHIAZIDE\OLMESARTAN MEDOXOMIL
     Indication: HYPERTENSION
     Dosage: 40/25MG, UNK
     Dates: start: 20080201, end: 2015
  3. TRIBENZOR [Suspect]
     Active Substance: AMLODIPINE BESYLATE\HYDROCHLOROTHIAZIDE\OLMESARTAN MEDOXOMIL
     Indication: HYPERTENSION
     Dosage: 40/10/25 MG, QD
     Route: 048
     Dates: end: 2015
  4. ZANTAC [Concomitant]
     Active Substance: RANITIDINE HYDROCHLORIDE
     Indication: PRODUCT USED FOR UNKNOWN INDICATION
     Dosage: UNK

REACTIONS (14)
  - Syncope [Unknown]
  - Gastrooesophageal reflux disease [Not Recovered/Not Resolved]
  - Electrolyte imbalance [Unknown]
  - Gastrointestinal wall thickening [Recovering/Resolving]
  - Headache [Unknown]
  - Cerebrovascular accident [Unknown]
  - Gastritis [Recovering/Resolving]
  - Weight decreased [Not Recovered/Not Resolved]
  - Duodenitis [Recovering/Resolving]
  - Diarrhoea [Recovering/Resolving]
  - Hepatic enzyme increased [Unknown]
  - Haemorrhoids [Recovering/Resolving]
  - Hepatic steatosis [Unknown]
  - Depression [Unknown]

NARRATIVE: CASE EVENT DATE: 201308
